FAERS Safety Report 20551806 (Version 1)
Quarter: 2022Q1

REPORT INFORMATION
  Report Type: Spontaneous
  Country: US (occurrence: US)
  Receive Date: 20220304
  Receipt Date: 20220304
  Transmission Date: 20220424
  Serious: Yes (Death, Hospitalization)
  Sender: FDA-Public Use
  Company Number: US-STRIDES ARCOLAB LIMITED-2022SP002114

PATIENT
  Age: 59 Year
  Sex: Male

DRUGS (1)
  1. HYDRALAZINE HCL [Suspect]
     Active Substance: HYDRALAZINE HYDROCHLORIDE
     Indication: Hypertension
     Dosage: UNK, (USING FROM PAST 10 YEARS)
     Route: 065

REACTIONS (2)
  - Pulmonary haemorrhage [Fatal]
  - Anti-neutrophil cytoplasmic antibody positive vasculitis [Fatal]
